FAERS Safety Report 10260302 (Version 2)
Quarter: 2014Q3

REPORT INFORMATION
  Report Type: Spontaneous
  Country: US (occurrence: US)
  Receive Date: 20140625
  Receipt Date: 20140924
  Transmission Date: 20150326
  Serious: No
  Sender: FDA-Public Use
  Company Number: US-SA-2014SA060094

PATIENT
  Age: 61 Year
  Sex: Female

DRUGS (5)
  1. PROZAC [Concomitant]
     Active Substance: FLUOXETINE HYDROCHLORIDE
  2. AMPYRA [Concomitant]
     Active Substance: DALFAMPRIDINE
  3. TEMAZEPAM. [Concomitant]
     Active Substance: TEMAZEPAM
  4. VESICARE [Concomitant]
     Active Substance: SOLIFENACIN SUCCINATE
  5. AUBAGIO [Suspect]
     Active Substance: TERIFLUNOMIDE
     Indication: MULTIPLE SCLEROSIS
     Route: 048
     Dates: start: 20131018

REACTIONS (1)
  - Pruritus [Unknown]
